FAERS Safety Report 5601541-1 (Version None)
Quarter: 2008Q1

REPORT INFORMATION
  Report Type: 
  Country: None (occurrence: None)
  Receive Date: 20080124
  Receipt Date: 20080114
  Transmission Date: 20080703
  Serious: Yes (Other)
  Sender: FDA-Public Use
  Company Number: US-ABBOTT-08P-163-0433193-00

PATIENT
  Age: 34 Year
  Sex: Female

DRUGS (3)
  1. NORVIR [Suspect]
     Indication: HIV INFECTION
     Route: 048
  2. TRUVADA [Suspect]
     Indication: HIV INFECTION
     Dosage: 300 MG/200 MG
     Route: 048
  3. FOSAMPRENAVIR [Suspect]
     Indication: HIV INFECTION
     Route: 048

REACTIONS (1)
  - ABORTION SPONTANEOUS [None]
